FAERS Safety Report 4970129-8 (Version None)
Quarter: 2006Q2

REPORT INFORMATION
  Report Type: 
  Country: None (occurrence: None)
  Receive Date: 20060406
  Receipt Date: 20060324
  Transmission Date: 20061013
  Serious: Yes (Other)
  Sender: FDA-Public Use
  Company Number: 2006032862

PATIENT
  Age: 71 Year
  Sex: Male
  Weight: 102.0593 kg

DRUGS (4)
  1. CELEBREX [Suspect]
     Indication: ARTHRITIS
     Dosage: 200 MG (200 MG, 1 IN 1 D)
  2. TYLENOL [Suspect]
     Indication: PAIN
     Dates: start: 20060201, end: 20060201
  3. ALL OTHER NON-THERAPEUTIC PRODUCTS (ALL OTHER NON-THERAPEUTIC PRODUCTS [Suspect]
     Indication: ILL-DEFINED DISORDER
  4. ALL OTHER THERAPEUTIC PRODUCTS [Concomitant]

REACTIONS (7)
  - BONE PAIN [None]
  - DRUG INTERACTION [None]
  - LYMPHOMA [None]
  - PAIN [None]
  - RASH GENERALISED [None]
  - RASH MACULAR [None]
  - RECURRENT CANCER [None]
